FAERS Safety Report 7827604-8 (Version None)
Quarter: 2011Q4

REPORT INFORMATION
  Report Type: 
  Country: None (occurrence: None)
  Receive Date: 20111018
  Receipt Date: 20111004
  Transmission Date: 20120403
  Serious: Yes (Death, Other)
  Sender: FDA-Public Use
  Company Number: MC201100233

PATIENT
  Age: 55 Year
  Sex: Male
  Weight: 95 kg

DRUGS (3)
  1. PLAVIX [Concomitant]
  2. INTEGRILIN [Concomitant]
  3. ANGIOMAX [Suspect]
     Indication: PERCUTANEOUS CORONARY INTERVENTION
     Dosage: 0.75 MG/KG, BOLUS; 1.75MG/KG, HR, FEM ACCESS
     Dates: start: 20110515, end: 20110515

REACTIONS (7)
  - SURGICAL PROCEDURE REPEATED [None]
  - MYOCARDIAL INFARCTION [None]
  - COAGULATION TIME ABNORMAL [None]
  - CORONARY ARTERY THROMBOSIS [None]
  - NO THERAPEUTIC RESPONSE [None]
  - INCORRECT DRUG ADMINISTRATION DURATION [None]
  - MEDICAL DEVICE COMPLICATION [None]
